FAERS Safety Report 14945664 (Version 1)
Quarter: 2018Q2

REPORT INFORMATION
  Report Type: Spontaneous
  Country: NL (occurrence: NL)
  Receive Date: 20180529
  Receipt Date: 20180529
  Transmission Date: 20180711
  Serious: Yes (Hospitalization)
  Sender: FDA-Public Use
  Company Number: NL-AUROBINDO-AUR-APL-2018-027639

PATIENT
  Age: 16 Year
  Sex: Male
  Weight: 66 kg

DRUGS (2)
  1. CLOZAPINE 100 MG TABLET [Suspect]
     Active Substance: CLOZAPINE
     Indication: SCHIZOPHRENIA
     Dosage: 100 MILLIGRAM, ONCE A DAY, 1X PER DAG 1 STUK
     Route: 065
     Dates: start: 20180409, end: 20180423
  2. ARIPIPRAZOLE. [Concomitant]
     Active Substance: ARIPIPRAZOLE
     Indication: PRODUCT USED FOR UNKNOWN INDICATION
     Dosage: UNK
     Route: 065

REACTIONS (4)
  - Ejection fraction decreased [None]
  - Pericardial effusion [None]
  - Cardiac disorder [Recovering/Resolving]
  - Dilatation ventricular [None]

NARRATIVE: CASE EVENT DATE: 20180423
